FAERS Safety Report 10283402 (Version 4)
Quarter: 2015Q2

REPORT INFORMATION
  Report Type: Spontaneous
  Country: US (occurrence: US)
  Receive Date: 20140708
  Receipt Date: 20150424
  Transmission Date: 20150821
  Serious: Yes (Life-Threatening, Hospitalization, Congenital Anomaly, Other)
  Sender: FDA-Public Use
  Company Number: US-ELI_LILLY_AND_COMPANY-US201406009629

PATIENT
  Age: 0 Day

DRUGS (7)
  1. SUDAFED [Concomitant]
     Active Substance: PSEUDOEPHEDRINE HYDROCHLORIDE
     Route: 064
  2. PROZAC [Suspect]
     Active Substance: FLUOXETINE HYDROCHLORIDE
     Indication: ANXIETY
  3. ZOLOFT [Concomitant]
     Active Substance: SERTRALINE HYDROCHLORIDE
     Route: 064
  4. PROZAC [Suspect]
     Active Substance: FLUOXETINE HYDROCHLORIDE
     Indication: DEPRESSION
     Dosage: 20 MG, QD
     Route: 064
     Dates: start: 19991118
  5. XENICAL [Concomitant]
     Active Substance: ORLISTAT
     Indication: PRODUCT USED FOR UNKNOWN INDICATION
     Dosage: UNK, UNKNOWN
     Route: 064
  6. PRENAT                             /00023601/ [Concomitant]
     Route: 064
  7. AMOXICILLIN. [Concomitant]
     Active Substance: AMOXICILLIN
     Route: 064

REACTIONS (8)
  - Intestinal malrotation [Recovered/Resolved]
  - Constipation [Unknown]
  - Body temperature decreased [Recovered/Resolved]
  - Blood glucose decreased [Recovered/Resolved]
  - Respiratory depression [Recovered/Resolved]
  - Meconium stain [Recovered/Resolved]
  - Foetal exposure during pregnancy [Recovered/Resolved]
  - Apgar score low [Recovered/Resolved]

NARRATIVE: CASE EVENT DATE: 20011110
